FAERS Safety Report 26021071 (Version 1)
Quarter: 2025Q4

REPORT INFORMATION
  Report Type: Spontaneous
  Country: US (occurrence: None)
  Receive Date: 20251107
  Receipt Date: 20251107
  Transmission Date: 20260118
  Serious: Yes (Hospitalization)
  Sender: FDA-CTU
  Company Number: None

PATIENT
  Sex: Male

DRUGS (1)
  1. MIGLUSTAT [Suspect]
     Active Substance: MIGLUSTAT
     Indication: Gaucher^s disease
     Dosage: 200 MG TWICE A DAY ORAL ?
     Route: 048
     Dates: start: 20231010

REACTIONS (1)
  - Bronchitis [None]
